FAERS Safety Report 5175261-4 (Version None)
Quarter: 2006Q4

REPORT INFORMATION
  Report Type: 
  Country: None (occurrence: None)
  Receive Date: 20061211
  Receipt Date: 20061211
  Transmission Date: 20070319
  Serious: Yes (Hospitalization)
  Sender: FDA-Public Use
  Company Number: None

PATIENT
  Age: 39 Year
  Sex: Female
  Weight: 85.7298 kg

DRUGS (1)
  1. RAPTIVA [Suspect]
     Indication: PSORIASIS
     Dosage: 125 MG QW SQ
     Route: 058
     Dates: start: 20060509, end: 20060814

REACTIONS (3)
  - ERYTHRODERMIC PSORIASIS [None]
  - PSORIASIS [None]
  - PUSTULAR PSORIASIS [None]
